FAERS Safety Report 8097473-2 (Version None)
Quarter: 2012Q1

REPORT INFORMATION
  Report Type: 
  Country: None (occurrence: None)
  Receive Date: 20120128
  Receipt Date: 20110622
  Transmission Date: 20120608
  Serious: Yes (Hospitalization)
  Sender: FDA-Public Use
  Company Number: US-ABBOTT-11P-163-0734702-00

PATIENT
  Sex: Female
  Weight: 77.18 kg

DRUGS (6)
  1. HUMIRA [Suspect]
     Indication: RHEUMATOID ARTHRITIS
     Dates: start: 20101201, end: 20110508
  2. CELEBREX [Concomitant]
     Indication: RHEUMATOID ARTHRITIS
  3. LEFLUNOMIDE [Concomitant]
     Indication: RHEUMATOID ARTHRITIS
  4. PRILOSEC [Concomitant]
     Indication: DYSPEPSIA
  5. HUMIRA [Suspect]
     Dates: start: 20110616
  6. METHYLPREDNISOLONE [Concomitant]
     Indication: RHEUMATOID ARTHRITIS
     Dosage: TRYING TO STOP

REACTIONS (4)
  - ABDOMINAL PAIN [None]
  - HEPATOMEGALY [None]
  - PROCEDURAL PAIN [None]
  - CHOLELITHIASIS [None]
